FAERS Safety Report 23701598 (Version 1)
Quarter: 2024Q2

REPORT INFORMATION
  Report Type: Spontaneous
  Country: US (occurrence: None)
  Receive Date: 20240402
  Receipt Date: 20240402
  Transmission Date: 20240716
  Serious: Yes (Disabling)
  Sender: FDA-Public Use
  Company Number: None

PATIENT
  Age: 45 Year
  Sex: Male
  Weight: 67.5 kg

DRUGS (2)
  1. SPRAVATO [Suspect]
     Active Substance: ESKETAMINE
     Indication: Depression
     Dates: start: 20240326, end: 20240326
  2. VYVANSE [Concomitant]
     Active Substance: LISDEXAMFETAMINE DIMESYLATE

REACTIONS (17)
  - Derealisation [None]
  - Near death experience [None]
  - Fear of death [None]
  - Anxiety [None]
  - Visual impairment [None]
  - Dyspnoea [None]
  - Dysphagia [None]
  - Disorientation [None]
  - Cognitive disorder [None]
  - Dissociation [None]
  - Sedation [None]
  - Catatonia [None]
  - Speech disorder [None]
  - Dizziness [None]
  - Vertigo [None]
  - Coordination abnormal [None]
  - Impaired work ability [None]

NARRATIVE: CASE EVENT DATE: 20240326
